FAERS Safety Report 4444966-2 (Version None)
Quarter: 2004Q3

REPORT INFORMATION
  Report Type: 
  Country: None (occurrence: None)
  Receive Date: 20040903
  Receipt Date: 20040820
  Transmission Date: 20050211
  Serious: Yes (Other)
  Sender: FDA-Public Use
  Company Number: 2004229518CA

PATIENT
  Age: 19 Year
  Sex: Female
  Weight: 74.8 kg

DRUGS (2)
  1. DEPO-PROVERA [Suspect]
     Indication: CONTRACEPTION
     Dosage: 150 MG/ML 3 WEEKS, 1ST INJ, INTRAMUSCULAR; 150 MG, MOST RECENT INJ, INTRAMUSCULAR
     Route: 030
     Dates: start: 20040329, end: 20040329
  2. DEPO-PROVERA [Suspect]
     Indication: CONTRACEPTION
     Dosage: 150 MG/ML 3 WEEKS, 1ST INJ, INTRAMUSCULAR; 150 MG, MOST RECENT INJ, INTRAMUSCULAR
     Route: 030
     Dates: start: 20040615, end: 20040615

REACTIONS (7)
  - ASTHENIA [None]
  - DIZZINESS [None]
  - DYSPNOEA [None]
  - FATIGUE [None]
  - MENORRHAGIA [None]
  - METRORRHAGIA [None]
  - PANIC ATTACK [None]
